FAERS Safety Report 9681873 (Version 1)
Quarter: 2013Q4

REPORT INFORMATION
  Report Type: Spontaneous
  Country: US (occurrence: US)
  Receive Date: 20131111
  Receipt Date: 20131111
  Transmission Date: 20140711
  Serious: No
  Sender: FDA-Public Use
  Company Number: US-PFIZER INC-2013319572

PATIENT
  Age: 58 Year
  Sex: Female
  Weight: 83.9 kg

DRUGS (4)
  1. PRISTIQ [Suspect]
     Dosage: UNK
  2. LORAZEPAM [Interacting]
     Dosage: UNK
  3. XELJANZ [Interacting]
     Indication: RHEUMATOID ARTHRITIS
     Dosage: DAILY
     Dates: start: 2013, end: 2013
  4. XELJANZ [Interacting]
     Dosage: DAILY
     Dates: start: 2013

REACTIONS (3)
  - Drug interaction [Unknown]
  - Vision blurred [Not Recovered/Not Resolved]
  - Visual impairment [Not Recovered/Not Resolved]
